FAERS Safety Report 19124895 (Version 1)
Quarter: 2021Q2

REPORT INFORMATION
  Report Type: Spontaneous
  Country: US (occurrence: US)
  Receive Date: 20210413
  Receipt Date: 20210413
  Transmission Date: 20210717
  Serious: Yes (Other)
  Sender: FDA-Public Use
  Company Number: US-FRESENIUS KABI-FK202103693

PATIENT
  Age: 81 Year
  Sex: Female

DRUGS (1)
  1. PHENYLEPHRINE HYDROCHLORIDE INJECTION (MANUFACTURER UNKNOWN) [Suspect]
     Active Substance: PHENYLEPHRINE HYDROCHLORIDE
     Indication: HYPOTENSION
     Route: 065

REACTIONS (1)
  - Hyperglycaemia [Recovered/Resolved]
